FAERS Safety Report 9349262 (Version 2)
Quarter: 2013Q3

REPORT INFORMATION
  Report Type: Report from Study
  Country: NL (occurrence: NL)
  Receive Date: 20130614
  Receipt Date: 20130705
  Transmission Date: 20140515
  Serious: Yes (Hospitalization, Other)
  Sender: FDA-Public Use
  Company Number: NL-AMGEN-NLDCT2013042069

PATIENT
  Age: 9 Year
  Sex: Female
  Weight: 32 kg

DRUGS (5)
  1. ETANERCEPT [Suspect]
     Indication: JUVENILE IDIOPATHIC ARTHRITIS
     Dosage: 25 MG, WEEKLY
     Route: 065
     Dates: start: 20120831
  2. METHOTREXATE SODIUM [Concomitant]
     Indication: JUVENILE IDIOPATHIC ARTHRITIS
     Dosage: 10 MG, WEEKLY
     Dates: start: 20120824
  3. IBUPROFEN [Concomitant]
     Dosage: 400 MG, 2X/DAY
     Dates: end: 201302
  4. OMEPRAZOL                          /00661201/ [Concomitant]
     Dosage: 20 MG, 1X/DAY
  5. FOLIC ACID [Concomitant]
     Dosage: 5 MG, WEEKLY
     Dates: start: 20120824

REACTIONS (2)
  - Polyarteritis nodosa [Recovering/Resolving]
  - Polyarthritis [Recovering/Resolving]
